FAERS Safety Report 24267281 (Version 1)
Quarter: 2024Q3

REPORT INFORMATION
  Report Type: Spontaneous
  Country: FR (occurrence: FR)
  Receive Date: 20240830
  Receipt Date: 20240830
  Transmission Date: 20241016
  Serious: Yes (Other)
  Sender: RANBAXY
  Company Number: FR-SUN PHARMACEUTICAL INDUSTRIES LTD-2024RR-464990

PATIENT
  Age: 14 Year
  Sex: Male
  Weight: 48 kg

DRUGS (1)
  1. VENLAFAXINE [Suspect]
     Active Substance: VENLAFAXINE HYDROCHLORIDE
     Indication: Product used for unknown indication
     Dosage: LP 37,5MG
     Route: 048
     Dates: start: 20240421, end: 20240421

REACTIONS (3)
  - Vomiting [Recovered/Resolved]
  - Somnolence [Recovered/Resolved]
  - Wrong drug [Recovered/Resolved]

NARRATIVE: CASE EVENT DATE: 20240421
